FAERS Safety Report 25126643 (Version 1)
Quarter: 2025Q1

REPORT INFORMATION
  Report Type: Spontaneous
  Country: US (occurrence: US)
  Receive Date: 20250327
  Receipt Date: 20250327
  Transmission Date: 20250408
  Serious: Yes (Other)
  Sender: Kenvue
  Company Number: US-KENVUE-20250306262

PATIENT
  Age: 55 Year
  Sex: Female

DRUGS (4)
  1. BENADRYL ALLERGY ULTRATAB [Suspect]
     Active Substance: DIPHENHYDRAMINE HYDROCHLORIDE
     Indication: Hypersensitivity
     Route: 065
     Dates: start: 20250310, end: 20250310
  2. BENADRYL ALLERGY ULTRATAB [Suspect]
     Active Substance: DIPHENHYDRAMINE HYDROCHLORIDE
     Indication: Throat irritation
  3. BENADRYL ALLERGY ULTRATAB [Suspect]
     Active Substance: DIPHENHYDRAMINE HYDROCHLORIDE
     Indication: Rhinorrhoea
  4. BENADRYL ALLERGY ULTRATAB [Suspect]
     Active Substance: DIPHENHYDRAMINE HYDROCHLORIDE
     Indication: Eye pruritus

REACTIONS (3)
  - Loss of consciousness [Recovered/Resolved]
  - Blood pressure decreased [Recovering/Resolving]
  - Eye contusion [Recovering/Resolving]

NARRATIVE: CASE EVENT DATE: 20250310
